FAERS Safety Report 9613429 (Version 2)
Quarter: 2014Q1

REPORT INFORMATION
  Report Type: Spontaneous
  Country: US (occurrence: US)
  Receive Date: 20131010
  Receipt Date: 20140207
  Transmission Date: 20141002
  Serious: No
  Sender: FDA-Public Use
  Company Number: US-PFIZER INC-2013289082

PATIENT
  Age: 81 Year
  Sex: Female

DRUGS (15)
  1. BEXTRA [Suspect]
     Dosage: UNK
  2. CELEBREX [Suspect]
     Dosage: UNK
  3. ERYTHROMYCIN [Suspect]
     Dosage: UNK
  4. PIROXICAM [Suspect]
     Dosage: UNK
  5. FELDENE [Suspect]
     Dosage: UNK
  6. CAFFEINE [Suspect]
     Dosage: UNK
  7. CODEINE [Suspect]
     Dosage: UNK
  8. DEMEROL [Suspect]
     Dosage: UNK
  9. DILAUDID [Suspect]
     Dosage: UNK
  10. DRIXORAL [Suspect]
     Dosage: UNK
  11. PERCOCET [Suspect]
     Dosage: UNK
  12. SULPHUR [Suspect]
     Dosage: UNK
  13. TETRACAINE [Suspect]
     Dosage: UNK
  14. VICODIN [Suspect]
     Dosage: UNK
  15. ULTRAM [Suspect]
     Dosage: UNK

REACTIONS (1)
  - Drug hypersensitivity [Unknown]
